FAERS Safety Report 9531026 (Version 1)
Quarter: 2013Q2

REPORT INFORMATION
  Report Type: Spontaneous
  Country: LB (occurrence: None)
  Receive Date: 20130426
  Receipt Date: 20130426
  Transmission Date: 20140414
  Serious: Yes (Hospitalization)
  Sender: FDA-Public Use
  Company Number: 2013-00239

PATIENT
  Age: 54 Year
  Sex: Female

DRUGS (4)
  1. QUETIAPINE (UNKNOWN) [Suspect]
     Indication: BIPOLAR I DISORDER
     Dosage: 300 MG (300 MG, 1 IN 1 D)
  2. QUETIAPINE (UNKNOWN) [Suspect]
     Dosage: 300 MG (300 MG, 1 IN 1 D)
  3. CHLORPROMAZINE [Concomitant]
  4. ZOLPIDEM [Concomitant]

REACTIONS (1)
  - Hypomania [None]
